FAERS Safety Report 5296114-7 (Version None)
Quarter: 2007Q2

REPORT INFORMATION
  Report Type: 
  Country: None (occurrence: None)
  Receive Date: 20070406
  Receipt Date: 20070330
  Transmission Date: 20071010
  Serious: Yes (Hospitalization)
  Sender: FDA-Public Use
  Company Number: 20070023USST

PATIENT
  Age: 65 Year
  Sex: Male
  Weight: 49 kg

DRUGS (3)
  1. NATULAN (PROCARBAZINE HYDROCHLORIDE) CAPSULES [Suspect]
     Dosage: 100 MG/M2/DAY 1 +7/PO
     Route: 048
     Dates: start: 20070210, end: 20070216
  2. TEMODAL [Suspect]
     Dosage: 200 MG/5 DAYS/PO
     Route: 048
     Dates: start: 20070210, end: 20070214
  3. METHOTREXATE [Suspect]
     Dosage: 3.5G/M2/DAY 1 + DAY 5/IV
     Route: 042
     Dates: start: 20070210, end: 20070216

REACTIONS (5)
  - BURNING SENSATION [None]
  - CYTOLYTIC HEPATITIS [None]
  - PRURIGO [None]
  - PURPURA [None]
  - TOXIC SKIN ERUPTION [None]
